FAERS Safety Report 6880411-5 (Version None)
Quarter: 2010Q3

REPORT INFORMATION
  Report Type: 
  Country: None (occurrence: None)
  Receive Date: 20100727
  Receipt Date: 20100716
  Transmission Date: 20110219
  Serious: Yes (Other)
  Sender: FDA-Public Use
  Company Number: A0815603A

PATIENT
  Sex: Male

DRUGS (1)
  1. ROSIGLITAZONE [Suspect]
     Indication: DIABETES MELLITUS
     Route: 048
     Dates: start: 20020402, end: 20090601

REACTIONS (8)
  - AUTOIMMUNE DISORDER [None]
  - CARDIAC FAILURE CONGESTIVE [None]
  - CARDIAC STRESS TEST ABNORMAL [None]
  - CARDIOVASCULAR DISORDER [None]
  - CORONARY ARTERY BYPASS [None]
  - HYPERTENSION [None]
  - INJURY [None]
  - TRANSIENT ISCHAEMIC ATTACK [None]
